FAERS Safety Report 15469615 (Version 1)
Quarter: 2018Q4

REPORT INFORMATION
  Report Type: Spontaneous
  Country: US (occurrence: US)
  Receive Date: 20181005
  Receipt Date: 20181005
  Transmission Date: 20190205
  Serious: Yes (Other)
  Sender: FDA-Public Use
  Company Number: US-SA-2018SA271809

PATIENT
  Sex: Female

DRUGS (1)
  1. PLAVIX [Suspect]
     Active Substance: CLOPIDOGREL BISULFATE
     Dosage: UNK, UNK
     Route: 065

REACTIONS (4)
  - Rectal haemorrhage [Unknown]
  - Constipation [Unknown]
  - Diarrhoea [Unknown]
  - Hypertension [Unknown]
